FAERS Safety Report 8273180-8 (Version None)
Quarter: 2012Q2

REPORT INFORMATION
  Report Type: 
  Country: None (occurrence: None)
  Receive Date: 20120411
  Receipt Date: 20120409
  Transmission Date: 20120825
  Serious: No
  Sender: FDA-Public Use
  Company Number: US-BAYER-2012-034719

PATIENT
  Sex: Female

DRUGS (21)
  1. SIMVASTATIN [Concomitant]
     Dosage: 40 MG, UNK
  2. PRANDIN [Concomitant]
     Dosage: 0.5 MG, TID
  3. BACTRIM DS [Concomitant]
  4. MAGNESIUM [Concomitant]
  5. LEVOXYL [Concomitant]
  6. ASACOL [Concomitant]
     Dosage: 800 MG, 1-2 BID
     Route: 048
  7. XANAX [Concomitant]
     Dosage: 0.25 MG, UNK
  8. EFFEXOR XR [Concomitant]
     Dosage: 37.5 MG, BID
  9. ZOLPIDEM [Concomitant]
     Dosage: 12.5 MG, HS
  10. BLACK COHOSH [Concomitant]
  11. CIPROFLOXACIN HCL [Suspect]
  12. LORATADINE [Concomitant]
     Dosage: 10 MG, UNK
  13. LYRICA [Concomitant]
     Dosage: 150 MG, BID
  14. LISINOPRIL [Concomitant]
     Dosage: 12.5 MG, BID
  15. ZOFRAN [Concomitant]
  16. DEXILANT [Concomitant]
  17. CALCIUM CARBONATE [Concomitant]
  18. VITAMIN B-12 [Concomitant]
  19. FISH OIL [Concomitant]
  20. COUMADIN [Concomitant]
     Dosage: 10 MG, UNK
  21. FLORASTOR [Concomitant]

REACTIONS (1)
  - URTICARIA [None]
